FAERS Safety Report 8964007 (Version 1)
Quarter: 2012Q4

REPORT INFORMATION
  Report Type: 
  Country: US (occurrence: US)
  Receive Date: 20121214
  Receipt Date: 20121214
  Transmission Date: 20130627
  Serious: Yes (Other)
  Sender: FDA-Public Use
  Company Number: US-ELI_LILLY_AND_COMPANY-US201212003684

PATIENT
  Age: 53 Year
  Sex: Male

DRUGS (2)
  1. CIALIS [Suspect]
     Indication: ERECTILE DYSFUNCTION
     Dosage: 5 mg, unknown
     Route: 048
     Dates: start: 20120930, end: 20120930
  2. ATENOLOL [Concomitant]
     Indication: HYPERTENSION
     Dosage: 100 mg, qd

REACTIONS (5)
  - Blindness [Unknown]
  - Anxiety [Unknown]
  - Insomnia [Unknown]
  - Tinnitus [Unknown]
  - Diplopia [Unknown]
